FAERS Safety Report 23157140 (Version 1)
Quarter: 2023Q4

REPORT INFORMATION
  Report Type: Spontaneous
  Country: US (occurrence: US)
  Receive Date: 20231108
  Receipt Date: 20231108
  Transmission Date: 20240110
  Serious: No
  Sender: FDA-Public Use
  Company Number: US-ALVOGEN-2023089042

PATIENT
  Sex: Female

DRUGS (3)
  1. LISINOPRIL [Suspect]
     Active Substance: LISINOPRIL
     Indication: Blood pressure abnormal
     Dosage: 2 TABLETS
  2. MYRBETRIQ [Suspect]
     Active Substance: MIRABEGRON
     Indication: Incontinence
     Dosage: EXPIRATION DATE: UU-OCT-2023
     Route: 048
     Dates: end: 202209
  3. MYRBETRIQ [Suspect]
     Active Substance: MIRABEGRON
     Indication: Incontinence
     Dosage: EXPIRATION DATE: UU-MAY-2023
     Route: 048
     Dates: start: 202209

REACTIONS (3)
  - Influenza like illness [Unknown]
  - Cough [Unknown]
  - Hypotension [Recovering/Resolving]
